FAERS Safety Report 4851699-7 (Version None)
Quarter: 2005Q4

REPORT INFORMATION
  Report Type: 
  Country: None (occurrence: None)
  Receive Date: 20051209
  Receipt Date: 20051209
  Transmission Date: 20060501
  Serious: No
  Sender: FDA-Public Use
  Company Number: None

PATIENT
  Age: 56 Year
  Sex: Male
  Weight: 86.1834 kg

DRUGS (3)
  1. LEVITRA [Suspect]
     Indication: ERECTILE DYSFUNCTION
     Dosage: 25MG/ EVERY OTHER DAY PO
     Route: 048
     Dates: start: 20051023, end: 20051113
  2. LEVITRA [Suspect]
     Indication: PROSTATE CANCER
     Dosage: 25MG/ EVERY OTHER DAY PO
     Route: 048
     Dates: start: 20051023, end: 20051113
  3. LEVITRA [Suspect]
     Indication: SURGERY
     Dosage: 25MG/ EVERY OTHER DAY PO
     Route: 048
     Dates: start: 20051023, end: 20051113

REACTIONS (2)
  - VITREOUS DETACHMENT [None]
  - VITREOUS FLOATERS [None]
